FAERS Safety Report 8925981 (Version 2)
Quarter: 2012Q4

REPORT INFORMATION
  Report Type: 
  Country: US (occurrence: US)
  Receive Date: 20121126
  Receipt Date: 20121226
  Transmission Date: 20130627
  Serious: Yes (Other)
  Sender: FDA-Public Use
  Company Number: PHHY2012US106046

PATIENT
  Sex: Male

DRUGS (2)
  1. GILENYA [Suspect]
     Indication: MULTIPLE SCLEROSIS
     Dosage: 0.5 mg, QD
     Route: 048
     Dates: start: 20111116
  2. AMPYRA [Concomitant]
     Dosage: UNK UKN, UNK

REACTIONS (22)
  - Asthma [Not Recovered/Not Resolved]
  - Chest discomfort [Not Recovered/Not Resolved]
  - Condition aggravated [Unknown]
  - Feeling abnormal [Unknown]
  - Hyperhidrosis [Not Recovered/Not Resolved]
  - Grip strength decreased [Not Recovered/Not Resolved]
  - Nervousness [Not Recovered/Not Resolved]
  - Musculoskeletal pain [Unknown]
  - Pain in extremity [Not Recovered/Not Resolved]
  - Malaise [Recovered/Resolved]
  - Pain [Recovered/Resolved]
  - Hypoaesthesia [Not Recovered/Not Resolved]
  - Gait disturbance [Unknown]
  - Vision blurred [Not Recovered/Not Resolved]
  - Depression [Not Recovered/Not Resolved]
  - Apathy [Unknown]
  - Crying [Unknown]
  - Headache [Not Recovered/Not Resolved]
  - Drug ineffective [Unknown]
  - Vomiting [Recovered/Resolved]
  - Diarrhoea [Recovered/Resolved]
  - Back pain [Unknown]
